FAERS Safety Report 25752326 (Version 1)
Quarter: 2025Q3

REPORT INFORMATION
  Report Type: Spontaneous
  Country: EU (occurrence: EU)
  Receive Date: 20250902
  Receipt Date: 20250902
  Transmission Date: 20251020
  Serious: Yes (Other)
  Sender: MSN LABORATORIES PRIVATE LIMITED
  Company Number: None

PATIENT

DRUGS (8)
  1. SILODOSIN [Suspect]
     Active Substance: SILODOSIN
     Indication: Prostate cancer
     Route: 065
  2. LEVODOPA [Concomitant]
     Active Substance: LEVODOPA
     Indication: Product used for unknown indication
     Route: 065
  3. XADAGO [Concomitant]
     Active Substance: SAFINAMIDE MESYLATE
     Indication: Product used for unknown indication
     Route: 065
  4. CLOZAPINE [Concomitant]
     Active Substance: CLOZAPINE
     Indication: Product used for unknown indication
     Route: 065
  5. RAMIPRIL [Concomitant]
     Active Substance: RAMIPRIL
     Indication: Product used for unknown indication
     Route: 065
  6. ATORVASTATIN [Concomitant]
     Active Substance: ATORVASTATIN
     Indication: Product used for unknown indication
     Route: 065
  7. ASPIRIN [Concomitant]
     Active Substance: ASPIRIN
     Indication: Product used for unknown indication
     Route: 065
  8. FOLIC ACID [Concomitant]
     Active Substance: FOLIC ACID
     Indication: Product used for unknown indication
     Route: 065

REACTIONS (15)
  - Lenticular opacities [Unknown]
  - Syncope [Unknown]
  - Dizziness postural [Unknown]
  - Dyspnoea [Unknown]
  - Fall [Unknown]
  - Impaired quality of life [Unknown]
  - Impaired driving ability [Unknown]
  - Libido decreased [Unknown]
  - Nausea [Unknown]
  - Ocular discomfort [Unknown]
  - Prostatic specific antigen increased [Unknown]
  - Somnolence [Unknown]
  - Swelling face [Unknown]
  - Pruritus [Unknown]
  - Urticaria [Unknown]
